FAERS Safety Report 7128073-6 (Version None)
Quarter: 2010Q4

REPORT INFORMATION
  Report Type: 
  Country: None (occurrence: None)
  Receive Date: 20101130
  Receipt Date: 20101020
  Transmission Date: 20110411
  Serious: No
  Sender: FDA-Public Use
  Company Number: US-ALLERGAN-1013466US

PATIENT
  Sex: Male

DRUGS (1)
  1. ZYMAXID [Suspect]
     Indication: PRODUCT USED FOR UNKNOWN INDICATION
     Dosage: UNK
     Dates: start: 20100501

REACTIONS (2)
  - COUGH [None]
  - THROAT IRRITATION [None]
